FAERS Safety Report 24793015 (Version 3)
Quarter: 2025Q1

REPORT INFORMATION
  Report Type: Spontaneous
  Country: CA (occurrence: CA)
  Receive Date: 20241231
  Receipt Date: 20250117
  Transmission Date: 20250409
  Serious: Yes (Other)
  Sender: CELLTRION
  Company Number: CA-PFIZER INC-202400255698

PATIENT

DRUGS (13)
  1. INFLECTRA [Suspect]
     Active Substance: INFLIXIMAB-DYYB
     Indication: Colitis ulcerative
     Route: 042
     Dates: start: 20240606, end: 20240606
  2. CLOPAMIDE\DIHYDROERGOCRISTINE MESYLATE\RESERPINE [Concomitant]
     Active Substance: CLOPAMIDE\DIHYDROERGOCRISTINE MESYLATE\RESERPINE
     Indication: Colitis ulcerative
  3. BUPROPION [Concomitant]
     Active Substance: BUPROPION
  4. CALCIUM [Concomitant]
     Active Substance: CALCIUM
  5. FLOMAX [Concomitant]
     Active Substance: TAMSULOSIN HYDROCHLORIDE
  6. FOLIC ACID [Concomitant]
     Active Substance: FOLIC ACID
  7. FOSAMAX [Concomitant]
     Active Substance: ALENDRONATE SODIUM
  8. PREDNISONE [Concomitant]
     Active Substance: PREDNISONE
  9. PREDNISONE [Concomitant]
     Active Substance: PREDNISONE
     Dates: end: 20231020
  10. RAMIPRIL [Concomitant]
     Active Substance: RAMIPRIL
  11. REPATHA [Concomitant]
     Active Substance: EVOLOCUMAB
  12. CHOLECALCIFEROL [Concomitant]
     Active Substance: CHOLECALCIFEROL
  13. XARELTO [Concomitant]
     Active Substance: RIVAROXABAN

REACTIONS (5)
  - Clostridium difficile infection [Recovered/Resolved]
  - Polyp [Unknown]
  - Adenoma benign [Unknown]
  - Atrial flutter [Unknown]
  - Haemorrhage [Recovered/Resolved]

NARRATIVE: CASE EVENT DATE: 20240101
